FAERS Safety Report 8968046 (Version 1)
Quarter: 2012Q4

REPORT INFORMATION
  Report Type: 
  Country: GB (occurrence: GB)
  Receive Date: 20121217
  Receipt Date: 20121217
  Transmission Date: 20130627
  Serious: Yes (Other)
  Sender: FDA-Public Use
  Company Number: GB-VERTEX PHARMACEUTICALS INC.-2012-026267

PATIENT

DRUGS (5)
  1. INCIVO [Suspect]
     Indication: HEPATITIS C
     Dosage: Dosage Form: Tablet
     Route: 048
  2. RIBAVIRIN [Suspect]
     Indication: HEPATITIS C
     Dosage: Dosage Form: Unspecified
     Route: 048
  3. RIBAVIRIN [Suspect]
     Dosage: Dosage Form: Unspecified
     Route: 048
  4. RIBAVIRIN [Suspect]
     Dosage: Dosage Form: Unspecified
     Route: 048
  5. PEGINTERFERON ALPHA 2-B [Concomitant]
     Indication: HEPATITIS C
     Dosage: Dosage Form: Unspecified
     Route: 065

REACTIONS (5)
  - Decreased appetite [Unknown]
  - Anaemia [Unknown]
  - Lethargy [Unknown]
  - Fatigue [Unknown]
  - Vomiting [Unknown]
